FAERS Safety Report 4873625-7 (Version None)
Quarter: 2005Q4

REPORT INFORMATION
  Report Type: 
  Country: None (occurrence: None)
  Receive Date: 20051201
  Receipt Date: 20050824
  Transmission Date: 20060501
  Serious: No
  Sender: FDA-Public Use
  Company Number: 2005PV001502

PATIENT
  Age: 41 Year
  Sex: Female
  Weight: 92.9874 kg

DRUGS (6)
  1. BYETTA [Suspect]
     Indication: DIABETES MELLITUS NON-INSULIN-DEPENDENT
     Dosage: 5 MCG;BID;SC
     Route: 058
     Dates: start: 20050816
  2. LISINOPRIL [Concomitant]
  3. LEVAQUIN [Concomitant]
  4. NEXIUM [Concomitant]
  5. ATENOLOL [Concomitant]
  6. GLIPIZIDE [Concomitant]

REACTIONS (7)
  - BLOOD GLUCOSE DECREASED [None]
  - CONFUSIONAL STATE [None]
  - FEELING HOT [None]
  - FEELING JITTERY [None]
  - NAUSEA [None]
  - PALPITATIONS [None]
  - SUDDEN ONSET OF SLEEP [None]
